FAERS Safety Report 6924300-6 (Version None)
Quarter: 2010Q3

REPORT INFORMATION
  Report Type: 
  Country: None (occurrence: None)
  Receive Date: 20100811
  Receipt Date: 20100811
  Transmission Date: 20110219
  Serious: Yes (Other)
  Sender: FDA-Public Use
  Company Number: None

PATIENT
  Sex: Female
  Weight: 48.0813 kg

DRUGS (1)
  1. XELODA [Suspect]
     Indication: BILIARY NEOPLASM
     Dosage: 1000MG BID PO
     Route: 048
     Dates: start: 20100728, end: 20100807

REACTIONS (1)
  - MUSCLE SPASMS [None]
